FAERS Safety Report 4989998-0 (Version None)
Quarter: 2006Q2

REPORT INFORMATION
  Report Type: 
  Country: None (occurrence: None)
  Receive Date: 20060503
  Receipt Date: 20060419
  Transmission Date: 20061013
  Serious: Yes (Hospitalization)
  Sender: FDA-Public Use
  Company Number: DE-JNJFOC-20060500268

PATIENT
  Age: 65 Year
  Sex: Male

DRUGS (11)
  1. TRAMAL LONG [Suspect]
  2. TRAMAL LONG [Suspect]
     Indication: ANALGESIC THERAPY
  3. BISOPROLOL [Concomitant]
     Route: 065
  4. CLONIDINE [Concomitant]
     Route: 065
  5. SIMVASTATIN [Concomitant]
     Route: 065
  6. ASPIRIN [Concomitant]
     Indication: THROMBOSIS PROPHYLAXIS
     Route: 065
  7. PLAVIX [Concomitant]
     Indication: THROMBOSIS PROPHYLAXIS
     Route: 065
  8. RAMIPRIL [Concomitant]
     Route: 065
  9. ZOPICLONE [Concomitant]
     Route: 065
  10. LERCANIDIPINE HYDROCHLORIDE [Concomitant]
     Route: 065
  11. PHENPROCOUMON [Concomitant]
     Route: 065

REACTIONS (1)
  - AORTIC THROMBOSIS [None]
